FAERS Safety Report 10530089 (Version 1)
Quarter: 2014Q4

REPORT INFORMATION
  Report Type: Spontaneous
  Country: US (occurrence: None)
  Receive Date: 20141020
  Receipt Date: 20141020
  Transmission Date: 20150528
  Serious: No
  Sender: FDA-Public Use
  Company Number: None

PATIENT
  Age: 67 Year
  Sex: Male

DRUGS (1)
  1. VICTOZA [Suspect]
     Active Substance: LIRAGLUTIDE
     Indication: BLOOD GLUCOSE INCREASED
     Dosage: ONCE DAILY

REACTIONS (4)
  - Cerebrovascular accident [None]
  - Dizziness [None]
  - Ear infection [None]
  - Gait disturbance [None]

NARRATIVE: CASE EVENT DATE: 20141019
